FAERS Safety Report 5460641-X (Version None)
Quarter: 2007Q3

REPORT INFORMATION
  Report Type: 
  Country: None (occurrence: None)
  Receive Date: 20070918
  Receipt Date: 20070906
  Transmission Date: 20080115
  Serious: Yes (Hospitalization)
  Sender: FDA-Public Use
  Company Number: WAES 0709GBR00014

PATIENT
  Age: 62 Year
  Sex: Male

DRUGS (17)
  1. COZAAR [Suspect]
     Indication: CARDIAC FAILURE CONGESTIVE
     Dosage: PO
     Route: 048
     Dates: start: 20040303
  2. MG TRISILICATE [Concomitant]
  3. ACETAMINOPHEN [Concomitant]
  4. AMIODARONE HCL [Concomitant]
  5. ASPIRIN [Concomitant]
  6. CALCIUM CARBONATE (+) SODIUM ALGINATE [Concomitant]
  7. CODEINE PHOSPHATE [Concomitant]
  8. DOMPERIDONE [Concomitant]
  9. FUROSEMIDE [Concomitant]
  10. LANSOPRAZOLE [Concomitant]
  11. NITROGLYCERIN [Concomitant]
  12. OMEPRAZOLE [Concomitant]
  13. POLYETHYLENE GLYCOL [Concomitant]
  14. PSYLLIUM HUSK [Concomitant]
  15. SENNA [Concomitant]
  16. SIMVASTATIN [Concomitant]
  17. SPIRONOLACTONE [Concomitant]

REACTIONS (1)
  - NON-CARDIAC CHEST PAIN [None]
